FAERS Safety Report 6849877-0 (Version None)
Quarter: 2010Q3

REPORT INFORMATION
  Report Type: 
  Country: None (occurrence: None)
  Receive Date: 20100716
  Receipt Date: 20071113
  Transmission Date: 20110219
  Serious: No
  Sender: FDA-Public Use
  Company Number: US-PFIZER INC-2007085335

PATIENT
  Sex: Female

DRUGS (2)
  1. CHANTIX [Suspect]
  2. ADVAIR DISKUS 100/50 [Concomitant]

REACTIONS (3)
  - COUGH [None]
  - DYSPHONIA [None]
  - HEADACHE [None]
